FAERS Safety Report 8494915-5 (Version None)
Quarter: 2012Q3

REPORT INFORMATION
  Report Type: 
  Country: None (occurrence: None)
  Receive Date: 20120709
  Receipt Date: 20120704
  Transmission Date: 20120928
  Serious: Yes (Hospitalization)
  Sender: FDA-Public Use
  Company Number: EG-PFIZER INC-2012160294

PATIENT
  Age: 20 Year
  Sex: Female

DRUGS (3)
  1. SOLU-MEDROL [Suspect]
     Indication: ANTIINFLAMMATORY THERAPY
     Dosage: 1 G, OVER 4 HOURS ON SALINE OR GLUCOSE, EVERY 6 MONTHS
     Route: 042
     Dates: end: 20120704
  2. PANTOPRAZOLE [Concomitant]
     Indication: HYPERCHLORHYDRIA
     Dosage: 20 MG, SINGLE
     Route: 048
     Dates: start: 20120703, end: 20120703
  3. SOLU-MEDROL [Suspect]
     Indication: AUTOIMMUNE DISORDER

REACTIONS (3)
  - PRURITUS [None]
  - HYPERVENTILATION [None]
  - STRIDOR [None]
